FAERS Safety Report 7441037-8 (Version None)
Quarter: 2011Q2

REPORT INFORMATION
  Report Type: 
  Country: None (occurrence: None)
  Receive Date: 20110427
  Receipt Date: 20090807
  Transmission Date: 20111010
  Serious: Yes (Hospitalization)
  Sender: FDA-Public Use
  Company Number: DE-GENENTECH-317510

PATIENT
  Age: 73 Year

DRUGS (1)
  1. LUCENTIS [Suspect]
     Indication: MACULAR DEGENERATION
     Dosage: UNK
     Route: 031
     Dates: start: 20090603

REACTIONS (4)
  - CARDIAC DISCOMFORT [None]
  - VISUAL ACUITY REDUCED [None]
  - FATIGUE [None]
  - EYE PAIN [None]
